FAERS Safety Report 11020823 (Version 1)
Quarter: 2015Q2

REPORT INFORMATION
  Report Type: Spontaneous
  Country: RS (occurrence: RS)
  Receive Date: 20150413
  Receipt Date: 20150413
  Transmission Date: 20150821
  Serious: Yes (Life-Threatening, Hospitalization, Other)
  Sender: FDA-Public Use
  Company Number: RS-JNJFOC-20141203833

PATIENT
  Age: 64 Year
  Sex: Female

DRUGS (10)
  1. XARELTO [Suspect]
     Active Substance: RIVAROXABAN
     Indication: PULMONARY EMBOLISM
     Route: 048
     Dates: start: 20141106
  2. LOSARTAN [Concomitant]
     Active Substance: LOSARTAN
     Route: 065
  3. FRAXIPARINE [Suspect]
     Active Substance: NADROPARIN CALCIUM
     Indication: PRODUCT USED FOR UNKNOWN INDICATION
     Route: 058
     Dates: start: 20141023, end: 20141102
  4. XARELTO [Suspect]
     Active Substance: RIVAROXABAN
     Indication: EMBOLISM VENOUS
     Route: 048
     Dates: start: 20141103, end: 20141105
  5. XARELTO [Suspect]
     Active Substance: RIVAROXABAN
     Indication: VENOUS THROMBOSIS
     Route: 048
     Dates: start: 20141106
  6. XARELTO [Suspect]
     Active Substance: RIVAROXABAN
     Indication: PULMONARY EMBOLISM
     Route: 048
     Dates: start: 20141103, end: 20141105
  7. XARELTO [Suspect]
     Active Substance: RIVAROXABAN
     Indication: VENOUS THROMBOSIS
     Route: 048
     Dates: start: 20141103, end: 20141105
  8. DILTIAZEM [Concomitant]
     Active Substance: DILTIAZEM
     Route: 065
  9. PLENDIL [Concomitant]
     Active Substance: FELODIPINE
     Route: 065
  10. XARELTO [Suspect]
     Active Substance: RIVAROXABAN
     Indication: EMBOLISM VENOUS
     Route: 048
     Dates: start: 20141106

REACTIONS (3)
  - Paraneoplastic syndrome [Unknown]
  - Pancreatic carcinoma [Unknown]
  - Haematuria [Recovered/Resolved]

NARRATIVE: CASE EVENT DATE: 2014
